FAERS Safety Report 9416985 (Version 2)
Quarter: 2013Q3

REPORT INFORMATION
  Report Type: Spontaneous
  Country: DE (occurrence: DE)
  Receive Date: 20130724
  Receipt Date: 20130819
  Transmission Date: 20140515
  Serious: Yes (Other)
  Sender: FDA-Public Use
  Company Number: DE-TEVA-419327GER

PATIENT
  Age: 51 Year
  Sex: Female
  Weight: 52 kg

DRUGS (5)
  1. COPAXONE [Suspect]
     Indication: MULTIPLE SCLEROSIS
     Route: 058
     Dates: start: 20130502
  2. FAMPYRA [Suspect]
     Indication: MULTIPLE SCLEROSIS
     Dosage: 20 MILLIGRAM DAILY;
     Route: 048
     Dates: start: 20130502, end: 20130622
  3. THYRONAJOD [Concomitant]
     Indication: HYPOTHYROIDISM
     Route: 048
  4. MAGNESIUM VERLA [Concomitant]
     Route: 048
  5. METOPROLOL [Concomitant]
     Indication: HYPERTENSION
     Route: 048
     Dates: end: 20130620

REACTIONS (2)
  - Carotid artery stenosis [Not Recovered/Not Resolved]
  - Carotid artery occlusion [Not Recovered/Not Resolved]
